FAERS Safety Report 15451382 (Version 4)
Quarter: 2019Q2

REPORT INFORMATION
  Report Type: Report from Study
  Country: BE (occurrence: BE)
  Receive Date: 20181001
  Receipt Date: 20190607
  Transmission Date: 20190711
  Serious: Yes (Hospitalization)
  Sender: FDA-Public Use
  Company Number: BE-PFIZER INC-2018140375

PATIENT
  Age: 65 Year
  Sex: Female
  Weight: 55 kg

DRUGS (16)
  1. BEVACIZUMAB. [Suspect]
     Active Substance: BEVACIZUMAB
     Indication: COLORECTAL CANCER METASTATIC
     Dosage: 1, CYCLIC (EVERY TWO WEEKS)
     Route: 042
     Dates: start: 20160912
  2. FENTANYL. [Concomitant]
     Active Substance: FENTANYL
     Dosage: UNK
     Dates: start: 20171115
  3. IRINOTECAN HCL [Suspect]
     Active Substance: IRINOTECAN HYDROCHLORIDE
     Indication: COLORECTAL CANCER METASTATIC
     Dosage: 1, CYCLIC (EVERY TWO WEEKS)
     Route: 042
     Dates: start: 20180108, end: 20180423
  4. LEUKOVORIN [Suspect]
     Active Substance: LEUCOVORIN SODIUM
     Indication: COLORECTAL CANCER METASTATIC
     Dosage: 1, CYCLIC (EVERY TWO WEEKS)
     Route: 042
     Dates: start: 20160108, end: 20180423
  5. LYRICA [Concomitant]
     Active Substance: PREGABALIN
     Dosage: UNK
     Dates: start: 20171115, end: 20180823
  6. IRINOTECAN HCL [Suspect]
     Active Substance: IRINOTECAN HYDROCHLORIDE
     Dosage: 1, CYCLIC (EVERY TWO WEEKS)
     Route: 042
     Dates: start: 20180625, end: 20180806
  7. FLUOROURACIL. [Suspect]
     Active Substance: FLUOROURACIL
     Indication: COLORECTAL CANCER METASTATIC
     Dosage: 1, CYCLIC (EVERY TWO WEEKS)
     Route: 042
     Dates: start: 20160108, end: 20180423
  8. BEVACIZUMAB. [Suspect]
     Active Substance: BEVACIZUMAB
     Dosage: 1, CYCLIC (EVERY TWO WEEKS)
     Route: 042
     Dates: start: 20180108, end: 20180423
  9. LYRICA [Concomitant]
     Active Substance: PREGABALIN
     Dosage: UNK
     Dates: start: 20180827
  10. MOTILIUM [Concomitant]
     Active Substance: DOMPERIDONE
     Indication: VOMITING
     Dosage: UNK
  11. FLUOROURACIL. [Suspect]
     Active Substance: FLUOROURACIL
     Dosage: 1, CYCLIC (EVERY TWO WEEKS, ON 23JUL2018 RECEIVED MOST RECENT DOSE OF FLUOROURACIL)
     Route: 042
     Dates: start: 20180625, end: 20180806
  12. LEUKOVORIN [Suspect]
     Active Substance: LEUCOVORIN SODIUM
     Dosage: 1, CYCLIC (EVERY TWO WEEKS)
     Route: 042
     Dates: start: 20180625, end: 20180806
  13. BEVACIZUMAB. [Suspect]
     Active Substance: BEVACIZUMAB
     Dosage: 1, CYCLIC (EVERY TWO WEEKS)
     Route: 042
     Dates: start: 20180625, end: 20180806
  14. BEVACIZUMAB. [Suspect]
     Active Substance: BEVACIZUMAB
     Dosage: 275 FOR EVERY TWO WEEKS
     Dates: start: 20180723
  15. MOTILIUM [Concomitant]
     Active Substance: DOMPERIDONE
     Indication: NAUSEA
     Dosage: UNK
     Dates: start: 20180205
  16. OXYNORM [Concomitant]
     Active Substance: OXYCODONE HYDROCHLORIDE
     Dosage: UNK
     Dates: start: 20180108

REACTIONS (17)
  - Fatigue [Not Recovered/Not Resolved]
  - Vomiting [Recovered/Resolved]
  - Proteinuria [Not Recovered/Not Resolved]
  - Abdominal pain [Recovered/Resolved]
  - Diarrhoea [Recovered/Resolved]
  - Salivary hypersecretion [Recovered/Resolved]
  - Dyspnoea [Not Recovered/Not Resolved]
  - Eye irritation [Recovered/Resolved]
  - Stomatitis [Not Recovered/Not Resolved]
  - Epistaxis [Recovered/Resolved]
  - Nausea [Recovered/Resolved]
  - Skin laceration [Recovered/Resolved]
  - Foreign body in eye [Recovered/Resolved]
  - Nasal crusting [Not Recovered/Not Resolved]
  - Diarrhoea [Recovered/Resolved]
  - Intestinal obstruction [Recovered/Resolved]
  - Tooth infection [Recovered/Resolved]

NARRATIVE: CASE EVENT DATE: 20180108
